FAERS Safety Report 4873941-9 (Version None)
Quarter: 2006Q1

REPORT INFORMATION
  Report Type: 
  Country: None (occurrence: None)
  Receive Date: 20060104
  Receipt Date: 20051220
  Transmission Date: 20060701
  Serious: Yes (Other)
  Sender: FDA-Public Use
  Company Number: 2005159334

PATIENT
  Age: 70 Year
  Sex: Male
  Weight: 94.8018 kg

DRUGS (28)
  1. DILANTIN KAPSEAL [Suspect]
     Indication: POST-TRAUMATIC EPILEPSY
     Dosage: 300 MG (300 MG, 1 IN 1D)
     Dates: start: 19870101
  2. HERBAL PREPARATION INGREDIENTS UNKNOWN (HERBAL PREPARATION INGREDIENTS [Suspect]
     Indication: ILL-DEFINED DISORDER
  3. ESTER-C (CALCIUM ASCORBATE) [Concomitant]
  4. CENTRUM (MINERALS NOS, VITAMINS NOS) [Concomitant]
  5. ASPIRIN [Concomitant]
  6. GRAPE SEED EXTRACT (VISITS VINFERA EXTRACT) [Concomitant]
  7. GUGULIPID (COMMIPHORA MUKUL) [Concomitant]
  8. BILBERRY (MYRTILLUS) [Concomitant]
  9. COENZYME Q10 [Concomitant]
  10. SAW PALMETTO (SAW PALMETTO) [Concomitant]
  11. GINKO BILBOA (GINKO BILBOA) [Concomitant]
  12. ASPARTATE POTASSIUM  W/MAGNESIUM ASPARTATE (ASPARTATE POTASSIUM, MAGNE [Concomitant]
  13. CALCIUM (CALCIUM) [Concomitant]
  14. GINSENG (GINSENG) [Concomitant]
  15. OLIVE LEAVES EXTRACT (OLIVE LEAVES EXTRACT) [Concomitant]
  16. METHYLSULFONYLETHANE (METHYLSULFONYLETHANE) [Concomitant]
  17. SUDAFED 12 HOUR [Concomitant]
  18. ALL OTHER THERAPEUTIC PRODUCTS (ALL OTHER THERAPEUTIC PRODUCTS) [Concomitant]
  19. ATENOLOL [Concomitant]
  20. HYDROCHLOROTHIAZIDE/TRIAMTERENE (HYDROCHLOROTHIAZIDE, TRIAMTERENE) [Concomitant]
  21. SELENIUM (SELENIUM) [Concomitant]
  22. ENALAPRIL MALEATE [Concomitant]
  23. SELENOMETHIONINE (75 SE) (SELENOMETHIONINE (75 SE)) [Concomitant]
  24. MAGNESUM (MAGNESIUM) [Concomitant]
  25. B-50 (VITAMIN B NOS) [Concomitant]
  26. RHINOCORT [Concomitant]
  27. VITAMIN E [Concomitant]
  28. HERBAL PREPARATION (HERBAL PREPARATION) [Concomitant]

REACTIONS (2)
  - ANTICONVULSANT DRUG LEVEL BELOW THERAPEUTIC [None]
  - CONVULSION [None]
